FAERS Safety Report 10160544 (Version 1)
Quarter: 2014Q2

REPORT INFORMATION
  Report Type: Spontaneous
  Country: US (occurrence: None)
  Receive Date: 20140507
  Receipt Date: 20140507
  Transmission Date: 20141212
  Serious: Yes (Hospitalization)
  Sender: FDA-Public Use
  Company Number: None

PATIENT
  Age: 73 Year
  Sex: Female
  Weight: 58.06 kg

DRUGS (6)
  1. PRIMIDONE [Suspect]
     Indication: TREMOR
     Dosage: 1 PILL THE 3/4 , THE 1/2  2X A DAY
     Route: 048
  2. COSOPT [Concomitant]
  3. LITHIUM [Concomitant]
  4. WELLBUTRIN [Concomitant]
  5. BIOTIO [Concomitant]
  6. LOW DOSE ASPIRIN [Concomitant]

REACTIONS (5)
  - Hip fracture [None]
  - Wrist fracture [None]
  - Coordination abnormal [None]
  - Fall [None]
  - Unevaluable event [None]
